FAERS Safety Report 4340138-0 (Version None)
Quarter: 2004Q2

REPORT INFORMATION
  Report Type: 
  Country: None (occurrence: None)
  Receive Date: 20040416
  Receipt Date: 20040416
  Transmission Date: 20050107
  Serious: No
  Sender: FDA-Public Use
  Company Number: None

PATIENT
  Sex: Male
  Weight: 77.4 kg

DRUGS (1)
  1. ROCEPHIN [Suspect]
     Dosage: 1 GM EVERY 24 H IV
     Route: 042
     Dates: start: 20040409, end: 20040412

REACTIONS (7)
  - COUGH [None]
  - DIARRHOEA [None]
  - DYSPNOEA [None]
  - FATIGUE [None]
  - PAIN [None]
  - RASH [None]
  - SPUTUM DISCOLOURED [None]
